FAERS Safety Report 25664580 (Version 1)
Quarter: 2025Q3

REPORT INFORMATION
  Report Type: Spontaneous
  Country: US (occurrence: None)
  Receive Date: 20250808
  Receipt Date: 20250808
  Transmission Date: 20251020
  Serious: Yes (Hospitalization, Other)
  Sender: FDA-CTU
  Company Number: None

PATIENT
  Age: 46 Year
  Sex: Female
  Weight: 114.3 kg

DRUGS (10)
  1. ZEPBOUND [Suspect]
     Active Substance: TIRZEPATIDE
     Indication: Weight decreased
     Route: 059
     Dates: start: 20250224, end: 20250519
  2. LEVOTHYROXINE [Concomitant]
     Active Substance: LEVOTHYROXINE
  3. LOSARTAN [Concomitant]
     Active Substance: LOSARTAN
  4. HYDROXYCHLOROQUINE [Concomitant]
     Active Substance: HYDROXYCHLOROQUINE
  5. FAMOTIDINE [Concomitant]
     Active Substance: FAMOTIDINE
  6. PANTOPRAZOLE [Concomitant]
     Active Substance: PANTOPRAZOLE
  7. VITAMIN C [Concomitant]
     Active Substance: ASCORBIC ACID
  8. VITAMIN D3 [Concomitant]
     Active Substance: CHOLECALCIFEROL
  9. JWH-018 [Concomitant]
     Active Substance: JWH-018
  10. Magnesium bisglycinate [Concomitant]

REACTIONS (8)
  - Blood urine present [None]
  - Abdominal pain [None]
  - Haematochezia [None]
  - Impaired work ability [None]
  - Uterine haemorrhage [None]
  - Emotional distress [None]
  - Emotional distress [None]
  - Weight increased [None]

NARRATIVE: CASE EVENT DATE: 20250519
